FAERS Safety Report 14230734 (Version 1)
Quarter: 2017Q4

REPORT INFORMATION
  Report Type: Spontaneous
  Country: US (occurrence: US)
  Receive Date: 20171128
  Receipt Date: 20171128
  Transmission Date: 20180321
  Serious: Yes (Other)
  Sender: FDA-Public Use
  Company Number: US-AKORN PHARMACEUTICALS-2017AKN01326

PATIENT
  Age: 31 Year
  Sex: Female
  Weight: 70.75 kg

DRUGS (2)
  1. MYORISAN [Suspect]
     Active Substance: ISOTRETINOIN
     Indication: ACNE CYSTIC
     Dosage: 40 MG, 1X/DAY
     Route: 048
     Dates: start: 20170602, end: 20170925
  2. AVIANE [Concomitant]
     Active Substance: ETHINYL ESTRADIOL\LEVONORGESTREL
     Dosage: UNK UNK, 1X/DAY
     Dates: end: 2017

REACTIONS (5)
  - Alanine aminotransferase increased [Not Recovered/Not Resolved]
  - Protein total increased [Recovered/Resolved]
  - Hepatic steatosis [Unknown]
  - Aspartate aminotransferase increased [Not Recovered/Not Resolved]
  - Splenomegaly [Unknown]

NARRATIVE: CASE EVENT DATE: 2017
